FAERS Safety Report 7663949-2 (Version None)
Quarter: 2011Q3

REPORT INFORMATION
  Report Type: 
  Country: None (occurrence: None)
  Receive Date: 20110805
  Receipt Date: 20100820
  Transmission Date: 20111222
  Serious: No
  Sender: FDA-Public Use
  Company Number: US-ABBOTT-10P-163-0665035-00

PATIENT
  Sex: Male
  Weight: 106.69 kg

DRUGS (4)
  1. 5-DAY STEROID PACK [Concomitant]
     Indication: DERMATITIS CONTACT
     Route: 048
  2. NIASPAN [Suspect]
     Indication: HIGH DENSITY LIPOPROTEIN DECREASED
     Dosage: AT BEDTIME
     Route: 048
  3. NIASPAN [Suspect]
     Dosage: AT BEDTIME
     Route: 048
     Dates: start: 20100818, end: 20100819
  4. OTC ALLERGY MEDICATION [Concomitant]
     Indication: SEASONAL ALLERGY
     Route: 048

REACTIONS (3)
  - ERYTHEMA [None]
  - DRUG DOSE OMISSION [None]
  - PRURITUS [None]
